FAERS Safety Report 10644524 (Version 8)
Quarter: 2016Q2

REPORT INFORMATION
  Report Type: Report from Study
  Country: JP (occurrence: JP)
  Receive Date: 20141210
  Receipt Date: 20160602
  Transmission Date: 20160815
  Serious: Yes (Hospitalization, Other)
  Sender: FDA-Public Use
  Company Number: JP-ABBVIE-14P-087-1186315-00

PATIENT
  Age: 36 Year
  Sex: Male
  Weight: 61 kg

DRUGS (21)
  1. RHEUMATREX [Concomitant]
     Active Substance: METHOTREXATE SODIUM
     Dosage: 12 MG/WEEK
     Route: 048
     Dates: start: 20140611, end: 20140708
  2. RHEUMATREX [Concomitant]
     Active Substance: METHOTREXATE SODIUM
     Dosage: 14 MG/WEEK
     Route: 048
     Dates: start: 20140709, end: 20140805
  3. RHEUMATREX [Concomitant]
     Active Substance: METHOTREXATE SODIUM
     Dosage: 14 MG/WEEK
     Route: 048
     Dates: start: 20141001, end: 20141029
  4. FLOMOXEF SODIUM [Concomitant]
     Active Substance: FLOMOXEF SODIUM
     Indication: PROPHYLAXIS
  5. HUMIRA [Suspect]
     Active Substance: ADALIMUMAB
     Route: 058
     Dates: start: 20130724
  6. RHEUMATREX [Concomitant]
     Active Substance: METHOTREXATE SODIUM
     Dosage: 10 MG/WEEK
     Route: 048
     Dates: start: 20140514, end: 20140610
  7. FLOMOXEF SODIUM [Concomitant]
     Active Substance: FLOMOXEF SODIUM
     Indication: POST PROCEDURAL INFECTION
     Route: 050
     Dates: start: 20131206, end: 20131208
  8. HUMIRA [Suspect]
     Active Substance: ADALIMUMAB
     Route: 058
     Dates: start: 20120829, end: 20120829
  9. RHEUMATREX [Concomitant]
     Active Substance: METHOTREXATE SODIUM
     Dosage: 16 MG/WEEK
     Route: 048
     Dates: start: 20140806, end: 20140930
  10. PENTASA [Suspect]
     Active Substance: MESALAMINE
     Indication: CROHN^S DISEASE
     Route: 048
     Dates: end: 20130820
  11. RHEUMATREX [Concomitant]
     Active Substance: METHOTREXATE SODIUM
     Indication: RHEUMATOID ARTHRITIS
     Dosage: 8 MG/WEEK
     Route: 048
     Dates: start: 20140424, end: 20140513
  12. RHEUMATREX [Concomitant]
     Active Substance: METHOTREXATE SODIUM
     Dosage: 12 MG/WEEK
     Route: 048
     Dates: start: 20141030, end: 20150106
  13. FOLIC ACID. [Concomitant]
     Active Substance: FOLIC ACID
     Indication: VITAMIN SUPPLEMENTATION
     Dosage: 5 MG/WEEK
     Route: 048
     Dates: start: 20140424, end: 20141202
  14. FOLIC ACID. [Concomitant]
     Active Substance: FOLIC ACID
     Indication: PROPHYLAXIS
     Dosage: 10 MG/WEEK
     Route: 048
     Dates: start: 20141203
  15. HUMIRA [Suspect]
     Active Substance: ADALIMUMAB
     Route: 058
     Dates: start: 20120912, end: 20130703
  16. PENTASA [Suspect]
     Active Substance: MESALAMINE
     Route: 048
     Dates: start: 20130821
  17. RHEUMATREX [Concomitant]
     Active Substance: METHOTREXATE SODIUM
     Dosage: 10 MG/WEEK
     Route: 048
     Dates: start: 20150107
  18. CLOSTRIDIUM BUTYRICUM [Concomitant]
     Active Substance: CLOSTRIDIUM BUTYRICUM SPORES STRAIN M-55
     Indication: CROHN^S DISEASE
     Route: 048
  19. HUMIRA [Suspect]
     Active Substance: ADALIMUMAB
     Indication: CROHN^S DISEASE
     Route: 058
     Dates: start: 20120815, end: 20120815
  20. ENTERAL NUTRITION THERAPY [Concomitant]
     Indication: CROHN^S DISEASE
     Dates: start: 20130327, end: 20131212
  21. MESALAZINE [Concomitant]
     Active Substance: MESALAMINE
     Indication: PRODUCT USED FOR UNKNOWN INDICATION
     Dates: start: 20130821

REACTIONS (9)
  - Crohn^s disease [Recovering/Resolving]
  - Rash pruritic [Recovering/Resolving]
  - Inflammatory bowel disease [Not Recovered/Not Resolved]
  - Iron deficiency anaemia [Recovered/Resolved]
  - Rheumatoid arthritis [Not Recovered/Not Resolved]
  - Joint swelling [Not Recovered/Not Resolved]
  - Hepatic enzyme increased [Recovering/Resolving]
  - Ileal stenosis [Recovering/Resolving]
  - Pancreatitis acute [Recovering/Resolving]

NARRATIVE: CASE EVENT DATE: 201307
